FAERS Safety Report 9371086 (Version 1)
Quarter: 2013Q2

REPORT INFORMATION
  Report Type: Spontaneous
  Country: US (occurrence: None)
  Receive Date: 20130626
  Receipt Date: 20130626
  Transmission Date: 20140414
  Serious: Yes (Death)
  Sender: FDA-Public Use
  Company Number: None

PATIENT
  Sex: Male
  Weight: 83.92 kg

DRUGS (2)
  1. JANUVIA 100 MG MERCK [Suspect]
     Indication: TYPE 2 DIABETES MELLITUS
     Dosage: 100 MG ONE A DAY  PO
     Route: 048
     Dates: start: 20070118, end: 20080125
  2. JANUVIA [Suspect]
     Indication: TYPE 2 DIABETES MELLITUS
     Dosage: 50 MG  ONE A DAY  PO
     Route: 048
     Dates: start: 20080115, end: 20100507

REACTIONS (1)
  - Pancreatic carcinoma [None]
